FAERS Safety Report 25558153 (Version 5)
Quarter: 2025Q3

REPORT INFORMATION
  Report Type: Spontaneous
  Country: AR (occurrence: AR)
  Receive Date: 20250715
  Receipt Date: 20250912
  Transmission Date: 20251020
  Serious: No
  Sender: PFIZER
  Company Number: AR-PFIZER INC-202500140063

PATIENT
  Age: 6 Year
  Sex: Male

DRUGS (4)
  1. GENOTROPIN [Suspect]
     Active Substance: SOMATROPIN
     Indication: Chronic kidney disease
     Dosage: 0.6 MG, 1X/DAY
     Dates: start: 20250528
  2. CALCIUM [Concomitant]
     Active Substance: CALCIUM
  3. VITAMINS NOS [Concomitant]
     Active Substance: VITAMINS
  4. ERYTHROPOIETIN [Concomitant]
     Active Substance: ERYTHROPOIETIN

REACTIONS (2)
  - Device leakage [Unknown]
  - Device mechanical issue [Unknown]

NARRATIVE: CASE EVENT DATE: 20250708
